FAERS Safety Report 16498343 (Version 1)
Quarter: 2019Q2

REPORT INFORMATION
  Report Type: Spontaneous
  Country: US (occurrence: US)
  Receive Date: 20190629
  Receipt Date: 20190629
  Transmission Date: 20190711
  Serious: No
  Sender: FDA-Public Use
  Company Number: US-TEVA-2019-US-1062235

PATIENT
  Age: 93 Year
  Sex: Male

DRUGS (2)
  1. FLUOCINONIDE TEVA [Suspect]
     Active Substance: FLUOCINONIDE
     Indication: ERYTHEMA
  2. FLUOCINONIDE TEVA [Suspect]
     Active Substance: FLUOCINONIDE
     Indication: PRURITUS
     Dates: start: 20190517

REACTIONS (2)
  - Pruritus generalised [Unknown]
  - Drug ineffective [Unknown]

NARRATIVE: CASE EVENT DATE: 20190518
